FAERS Safety Report 19720124 (Version 1)
Quarter: 2021Q3

REPORT INFORMATION
  Report Type: Report from Study
  Country: US (occurrence: US)
  Receive Date: 20210818
  Receipt Date: 20210818
  Transmission Date: 20211014
  Serious: Yes (Other)
  Sender: FDA-Public Use
  Company Number: US-GILEAD-2021-0540460

PATIENT
  Age: 4 Year
  Sex: Female
  Weight: 22.2 kg

DRUGS (24)
  1. NOVAFERRUM [Concomitant]
     Active Substance: ASCORBIC ACID\FOLIC ACID\IRON
  2. ENSURE CLEAR [Concomitant]
  3. NATROBA [Concomitant]
     Active Substance: SPINOSAD
  4. PEDIASURE [CARBOHYDRATES NOS;FATS NOS;MINERALS NOS;PROTEIN;VITAMINS NO [Concomitant]
  5. SODIUM CHLORIDE. [Concomitant]
     Active Substance: SODIUM CHLORIDE
  6. PHYTONADIONE. [Concomitant]
     Active Substance: PHYTONADIONE
  7. PULMOZYME [Concomitant]
     Active Substance: DORNASE ALFA
  8. FLOVENT [Concomitant]
     Active Substance: FLUTICASONE PROPIONATE
  9. ALBUTEROL SULFATE. [Concomitant]
     Active Substance: ALBUTEROL SULFATE
  10. DUOCAL [Concomitant]
  11. MVW COMPLETE FORMULATION CHEWABLES [Concomitant]
  12. AZTREONAM LYSINE [Suspect]
     Active Substance: AZTREONAM LYSINE
     Indication: PSEUDOMONAS INFECTION
  13. IBUPROFEN. [Concomitant]
     Active Substance: IBUPROFEN
  14. NEXIUM I.V. [Concomitant]
     Active Substance: ESOMEPRAZOLE SODIUM
  15. URSODIOL. [Concomitant]
     Active Substance: URSODIOL
  16. AZTREONAM LYSINE [Suspect]
     Active Substance: AZTREONAM LYSINE
     Indication: CYSTIC FIBROSIS LUNG
     Dosage: 75 MG, TID, 28 DAYS ON AND 28 DAYS OFF
     Route: 065
     Dates: start: 20180102, end: 20210329
  17. COLISTIN [COLISTIMETHATE SODIUM] [Concomitant]
     Active Substance: COLISTIMETHATE SODIUM
     Dosage: 150 MG, BID, 28 DAYS ON 28 DAYS OFF CYCLES
     Route: 055
  18. AQUA CARE [Concomitant]
  19. DIPHENHYDRAMINE. [Concomitant]
     Active Substance: DIPHENHYDRAMINE
  20. KITABIS PAK [Concomitant]
     Active Substance: TOBRAMYCIN
  21. ZENPEP [Concomitant]
     Active Substance: PANCRELIPASE AMYLASE\PANCRELIPASE LIPASE\PANCRELIPASE PROTEASE
  22. MIRALAX [Concomitant]
     Active Substance: POLYETHYLENE GLYCOL 3350
  23. POLYETHYLENE GLYCOL 3350. [Concomitant]
     Active Substance: POLYETHYLENE GLYCOL 3350
  24. AZTREONAM LYSINE [Suspect]
     Active Substance: AZTREONAM LYSINE
     Indication: CYSTIC FIBROSIS

REACTIONS (25)
  - Meconium ileus [Unknown]
  - Lactase deficiency [Unknown]
  - Gastritis [Unknown]
  - Constipation [Unknown]
  - International normalised ratio increased [Unknown]
  - Arthropod bite [Unknown]
  - Bronchiectasis [Unknown]
  - Vitamin D deficiency [Unknown]
  - Cystic fibrosis gastrointestinal disease [Unknown]
  - Hepatomegaly [Not Recovered/Not Resolved]
  - Vitamin A deficiency [Unknown]
  - Liver function test increased [Not Recovered/Not Resolved]
  - Underweight [Recovering/Resolving]
  - Hepatic cirrhosis [Not Recovered/Not Resolved]
  - Productive cough [Not Recovered/Not Resolved]
  - Splenomegaly [Not Recovered/Not Resolved]
  - Distal intestinal obstruction syndrome [Unknown]
  - Iron deficiency anaemia [Unknown]
  - Drug resistance [Not Recovered/Not Resolved]
  - Drug ineffective [Not Recovered/Not Resolved]
  - Portal hypertension [Not Recovered/Not Resolved]
  - Pancreatic failure [Unknown]
  - Sinus operation [Unknown]
  - Vitamin E deficiency [Unknown]
  - Malabsorption [Unknown]

NARRATIVE: CASE EVENT DATE: 20180102
